FAERS Safety Report 4848638-1 (Version None)
Quarter: 2005Q4

REPORT INFORMATION
  Report Type: 
  Country: None (occurrence: None)
  Receive Date: 20051206
  Receipt Date: 20051123
  Transmission Date: 20060501
  Serious: Yes (Other)
  Sender: FDA-Public Use
  Company Number: 2005159836

PATIENT
  Sex: 0

DRUGS (3)
  1. CYTOTEC [Suspect]
     Indication: ABORTION
     Dosage: 1200 MCG (200 MCG, 2 TABS 3 IN 1 DAY), ORAL
     Route: 048
     Dates: start: 20051103, end: 20051103
  2. BRUFEN (IBUPROFEN) [Concomitant]
  3. ACETAMINOPHEN [Concomitant]

REACTIONS (1)
  - INDUCED ABORTION FAILED [None]
